FAERS Safety Report 10029102 (Version 1)
Quarter: 2014Q1

REPORT INFORMATION
  Report Type: Spontaneous
  Country: US (occurrence: US)
  Receive Date: 20140321
  Receipt Date: 20140321
  Transmission Date: 20141002
  Serious: No
  Sender: FDA-Public Use
  Company Number: US-PFIZER INC-2014080479

PATIENT
  Age: 57 Year
  Sex: Female
  Weight: 99.77 kg

DRUGS (3)
  1. CHANTIX [Suspect]
     Indication: SMOKING CESSATION THERAPY
     Dosage: UNK
     Dates: start: 20131204
  2. CHANTIX [Interacting]
     Dosage: 1 MG, 2X/DAY
     Dates: end: 201401
  3. NORCO [Interacting]
     Indication: PAIN
     Dosage: 20 MG, 6X/DAY
     Dates: start: 20131226, end: 20140213

REACTIONS (3)
  - Drug intolerance [Unknown]
  - Drug interaction [Unknown]
  - Nausea [Recovered/Resolved]
